FAERS Safety Report 22897303 (Version 5)
Quarter: 2024Q1

REPORT INFORMATION
  Report Type: Report from Study
  Country: US (occurrence: US)
  Receive Date: 20230902
  Receipt Date: 20240105
  Transmission Date: 20240410
  Serious: No
  Sender: FDA-Public Use
  Company Number: US-AMGEN-USASP2023155839

PATIENT
  Age: 79 Year
  Sex: Female

DRUGS (2)
  1. REPATHA [Suspect]
     Active Substance: EVOLOCUMAB
     Indication: Product used for unknown indication
     Dosage: 140 MILLIGRAM
     Route: 058
     Dates: end: 20231001
  2. REPATHA [Suspect]
     Active Substance: EVOLOCUMAB
     Dosage: 140 MILLIGRAM
     Route: 058
     Dates: start: 202310

REACTIONS (7)
  - Arthralgia [Recovered/Resolved]
  - Back pain [Recovered/Resolved]
  - Product storage error [Unknown]
  - Circumstance or information capable of leading to medication error [Unknown]
  - Incorrect disposal of product [Unknown]
  - Gastrointestinal disorder [Unknown]
  - Bone pain [Unknown]

NARRATIVE: CASE EVENT DATE: 20230901
